FAERS Safety Report 6160220-5 (Version None)
Quarter: 2009Q2

REPORT INFORMATION
  Report Type: 
  Country: None (occurrence: None)
  Receive Date: 20090420
  Receipt Date: 20090414
  Transmission Date: 20091009
  Serious: Yes (Life-Threatening)
  Sender: FDA-Public Use
  Company Number: B0565393A

PATIENT
  Sex: Male

DRUGS (7)
  1. LAMICTAL [Suspect]
     Indication: EPILEPSY
     Route: 048
     Dates: start: 20090216, end: 20090312
  2. DEPAKENE [Concomitant]
     Indication: EPILEPSY
     Dosage: 1098MG PER DAY
     Route: 048
  3. MEXITIL [Concomitant]
     Indication: ARRHYTHMIA
     Dosage: 99MG PER DAY
     Route: 048
  4. VASOLAN [Concomitant]
     Indication: ARRHYTHMIA
     Dosage: 120MG PER DAY
     Route: 048
  5. DIGOSIN [Concomitant]
     Indication: CARDIAC FAILURE
     Dosage: 249MCG PER DAY
     Route: 048
  6. UNKNOWN DRUG [Concomitant]
     Indication: CARNITINE DECREASED
     Dosage: 1200MG PER DAY
     Route: 048
  7. UNKNOWN DRUG [Concomitant]
     Indication: EPILEPSY
     Dosage: 27.9MG PER DAY
     Route: 048

REACTIONS (6)
  - HYPOVENTILATION [None]
  - OXYGEN SATURATION DECREASED [None]
  - PCO2 INCREASED [None]
  - PO2 INCREASED [None]
  - RESPIRATORY DEPRESSION [None]
  - SOMNOLENCE [None]
